FAERS Safety Report 6857342-X (Version None)
Quarter: 2010Q3

REPORT INFORMATION
  Report Type: 
  Country: None (occurrence: None)
  Receive Date: 20100719
  Receipt Date: 20100709
  Transmission Date: 20110219
  Serious: Yes (Other)
  Sender: FDA-Public Use
  Company Number: MX-JNJFOC-20100704830

PATIENT
  Sex: Female

DRUGS (1)
  1. ORTHO EVRA [Suspect]
     Indication: CONTRACEPTION
     Dosage: NORELGESTROMIN 6MG/ETHINYLESTRADIOL 0.6MG
     Route: 062

REACTIONS (1)
  - RESPIRATORY DISORDER [None]
